FAERS Safety Report 4643284-7 (Version None)
Quarter: 2005Q2

REPORT INFORMATION
  Report Type: 
  Country: None (occurrence: None)
  Receive Date: 20050422
  Receipt Date: 20050412
  Transmission Date: 20051028
  Serious: Yes (Other)
  Sender: FDA-Public Use
  Company Number: 200511510BCC

PATIENT
  Age: 79 Year
  Sex: Male
  Weight: 83.4619 kg

DRUGS (2)
  1. ALEVE [Suspect]
     Indication: LIMB INJURY
     Dosage: 440 MG, TOTAL, DAILY, ORAL
     Route: 048
     Dates: start: 20050301, end: 20050405
  2. ALEVE [Suspect]
     Indication: SHOULDER PAIN
     Dosage: 440 MG, TOTAL, DAILY, ORAL
     Route: 048
     Dates: start: 20050301, end: 20050405

REACTIONS (2)
  - BLOOD PRESSURE INCREASED [None]
  - DIZZINESS [None]
